FAERS Safety Report 13782449 (Version 1)
Quarter: 2017Q3

REPORT INFORMATION
  Report Type: Spontaneous
  Country: US (occurrence: US)
  Receive Date: 20170724
  Receipt Date: 20170724
  Transmission Date: 20171127
  Serious: No
  Sender: FDA-Public Use
  Company Number: US-PRINSTON PHARMACEUTICAL INC.-2017PRN00172

PATIENT
  Sex: Male
  Weight: 89.34 kg

DRUGS (4)
  1. LOSARTAN POTASSIUM. [Suspect]
     Active Substance: LOSARTAN POTASSIUM
     Indication: HYPERTENSION
     Dosage: 50 MG, 1X/DAY
     Route: 048
     Dates: start: 20170323, end: 20170429
  2. ROSUVASTATIN. [Concomitant]
     Active Substance: ROSUVASTATIN
  3. GLUCOSAMINE [Suspect]
     Active Substance: GLUCOSAMINE
     Dosage: UNK
     Dates: start: 201704, end: 201704
  4. UNSPECIFIED DIETARY SUPPLEMENTS [Concomitant]

REACTIONS (7)
  - Abdominal pain upper [Recovering/Resolving]
  - Rectal haemorrhage [Recovered/Resolved]
  - Blood pressure increased [Recovering/Resolving]
  - Dysuria [Recovering/Resolving]
  - Weight increased [Recovering/Resolving]
  - Drug ineffective [Recovered/Resolved]
  - Constipation [Recovering/Resolving]

NARRATIVE: CASE EVENT DATE: 2017
